FAERS Safety Report 6235083-X (Version None)
Quarter: 2009Q2

REPORT INFORMATION
  Report Type: 
  Country: None (occurrence: None)
  Receive Date: 20090618
  Receipt Date: 20090615
  Transmission Date: 20091009
  Serious: Yes (Death)
  Sender: FDA-Public Use
  Company Number: PHHY2009JP21239

PATIENT
  Age: 80 Year
  Sex: Female

DRUGS (5)
  1. NEORAL [Suspect]
     Indication: NEPHROTIC SYNDROME
     Dosage: 50 MG DAILY
     Route: 048
     Dates: start: 20090212
  2. PREDNISOLONE [Concomitant]
     Dosage: 20 MG, UNK
     Dates: start: 20081229, end: 20090601
  3. GASTER [Concomitant]
     Dosage: 40 MG, UNK
     Dates: start: 20081229, end: 20090601
  4. FUROSEMIDE [Concomitant]
     Dosage: 40 MG, UNK
     Dates: start: 20081229, end: 20090601
  5. BUP-4 [Concomitant]
     Dosage: 20 MG, UNK
     Route: 048
     Dates: start: 20090409, end: 20090601

REACTIONS (2)
  - BRAIN NATRIURETIC PEPTIDE INCREASED [None]
  - CARDIAC FAILURE CONGESTIVE [None]
